FAERS Safety Report 11190853 (Version 2)
Quarter: 2015Q2

REPORT INFORMATION
  Report Type: Spontaneous
  Country: JP (occurrence: JP)
  Receive Date: 20150615
  Receipt Date: 20150619
  Transmission Date: 20150821
  Serious: Yes (Other)
  Sender: FDA-Public Use
  Company Number: JP-UNITED THERAPEUTICS-UNT-2015-006778

PATIENT
  Age: 14 Year
  Sex: Female
  Weight: 42.4 kg

DRUGS (2)
  1. EPOPROSTENOL [Concomitant]
     Active Substance: EPOPROSTENOL
     Indication: PRODUCT USED FOR UNKNOWN INDICATION
  2. REMODULIN [Suspect]
     Active Substance: TREPROSTINIL
     Indication: PULMONARY ARTERIAL HYPERTENSION
     Dosage: UNK
     Route: 058
     Dates: start: 20150528, end: 20150608

REACTIONS (5)
  - Infusion site pain [Not Recovered/Not Resolved]
  - Infusion site induration [Unknown]
  - Infusion site oedema [Not Recovered/Not Resolved]
  - Abasia [Unknown]
  - Infusion site warmth [Unknown]

NARRATIVE: CASE EVENT DATE: 20150605
